FAERS Safety Report 13374726 (Version 1)
Quarter: 2017Q1

REPORT INFORMATION
  Report Type: Spontaneous
  Country: CN (occurrence: CN)
  Receive Date: 20170327
  Receipt Date: 20170327
  Transmission Date: 20170429
  Serious: Yes (Other)
  Sender: FDA-Public Use
  Company Number: CN-SA-2017SA048722

PATIENT
  Age: 86 Year
  Sex: Female
  Weight: 47.5 kg

DRUGS (6)
  1. SODIUM CHLORIDE INJECTION [Concomitant]
     Active Substance: SODIUM CHLORIDE
     Route: 041
     Dates: start: 20170110, end: 20170118
  2. PIPERACILLIN/TAZOBACTAM SODIUM [Suspect]
     Active Substance: PIPERACILLIN SODIUM\TAZOBACTAM SODIUM
     Indication: LUNG INFECTION
     Route: 041
     Dates: start: 20170104, end: 20170119
  3. GLUCOSE INJECTION [Concomitant]
     Route: 041
     Dates: start: 20170110, end: 20170118
  4. PLAVIX [Suspect]
     Active Substance: CLOPIDOGREL BISULFATE
     Indication: CORONARY ARTERY DISEASE
     Route: 048
     Dates: start: 20170106, end: 20170119
  5. ZUO KE [Suspect]
     Active Substance: LEVOFLOXACIN
     Indication: LUNG INFECTION
     Route: 041
     Dates: start: 20170110, end: 20170118
  6. PLAVIX [Suspect]
     Active Substance: CLOPIDOGREL BISULFATE
     Indication: ARTERIOSCLEROSIS CORONARY ARTERY
     Route: 048
     Dates: start: 20170106, end: 20170119

REACTIONS (2)
  - Petechiae [None]
  - Thrombocytopenia [Recovering/Resolving]

NARRATIVE: CASE EVENT DATE: 20170119
